FAERS Safety Report 6652784-X (Version None)
Quarter: 2010Q1

REPORT INFORMATION
  Report Type: 
  Country: None (occurrence: None)
  Receive Date: 20100325
  Receipt Date: 20100325
  Transmission Date: 20100710
  Serious: No
  Sender: FDA-Public Use
  Company Number: None

PATIENT
  Age: 32 Year
  Sex: Female
  Weight: 83.9154 kg

DRUGS (1)
  1. TOPAMAX [Suspect]
     Indication: MYOCLONIC EPILEPSY
     Dosage: 100 MG TWICE A DAY
     Dates: start: 20080701, end: 20081201

REACTIONS (15)
  - BALANCE DISORDER [None]
  - BURNING SENSATION [None]
  - DECREASED APPETITE [None]
  - DYSGEUSIA [None]
  - ERYTHEMA [None]
  - FOOD AVERSION [None]
  - LETHARGY [None]
  - MENTAL DISORDER [None]
  - NEURALGIA [None]
  - PARAESTHESIA [None]
  - PARAESTHESIA ORAL [None]
  - PREGNANCY [None]
  - QUALITY OF LIFE DECREASED [None]
  - SCAR [None]
  - WEIGHT DECREASED [None]
